FAERS Safety Report 7234264-6 (Version None)
Quarter: 2011Q1

REPORT INFORMATION
  Report Type: 
  Country: None (occurrence: None)
  Receive Date: 20110119
  Receipt Date: 20110114
  Transmission Date: 20110831
  Serious: Yes (Death, Hospitalization, Other)
  Sender: FDA-Public Use
  Company Number: PHHY2011FR02586

PATIENT
  Sex: Male

DRUGS (14)
  1. OXALIPLATIN [Suspect]
     Indication: BILE DUCT CANCER
     Dosage: UNK
     Route: 042
     Dates: start: 20080806, end: 20090121
  2. LEVOTHYROX [Concomitant]
  3. LASIX [Concomitant]
  4. ZOMETA [Suspect]
     Indication: METASTASES TO BONE
     Dosage: 4 MG, QMO
     Dates: start: 20090617, end: 20101006
  5. GEMCITABINE [Suspect]
     Indication: BILE DUCT CANCER
     Dosage: UNK
     Route: 042
     Dates: start: 20080806, end: 20101109
  6. FOZITEC [Concomitant]
  7. MOPRAL [Concomitant]
  8. ZOLADEX [Suspect]
     Indication: PROSTATE CANCER METASTATIC
     Dosage: EVERY 3 MONTHS
     Route: 058
     Dates: start: 20100101, end: 20100701
  9. ACETAMINOPHEN AND TRAMADOL HCL [Concomitant]
     Indication: PAIN
     Dosage: 37.5 / 325 MG
     Route: 048
     Dates: start: 20100217
  10. LYRICA [Concomitant]
     Indication: PAIN
     Dosage: UNK
     Route: 048
     Dates: start: 20100331
  11. KARDEGIC [Concomitant]
  12. TARCEVA [Suspect]
     Indication: BILE DUCT CANCER
     Dosage: 100 MG/DAY 3 WEEKS/4
     Route: 048
     Dates: start: 20090204, end: 20101109
  13. TOPALGIC [Concomitant]
     Indication: PAIN
     Dosage: UNK
     Route: 048
     Dates: start: 20100217
  14. ZOPICLONE [Concomitant]

REACTIONS (8)
  - RESPIRATORY DEPRESSION [None]
  - LUNG DISORDER [None]
  - RALES [None]
  - PAIN [None]
  - HYPOXIA [None]
  - PROSTATIC SPECIFIC ANTIGEN INCREASED [None]
  - PNEUMONIA PNEUMOCOCCAL [None]
  - GENERAL PHYSICAL HEALTH DETERIORATION [None]
